FAERS Safety Report 5807311-3 (Version None)
Quarter: 2008Q3

REPORT INFORMATION
  Report Type: 
  Country: None (occurrence: None)
  Receive Date: 20080709
  Receipt Date: 20080709
  Transmission Date: 20090109
  Serious: No
  Sender: FDA-Public Use
  Company Number: None

PATIENT
  Age: 74 Year
  Sex: Male
  Weight: 83.9154 kg

DRUGS (2)
  1. SPIRIVA [Suspect]
     Indication: DYSPNOEA
     Dosage: 1 CAPSUL EVERY MORNING
     Dates: start: 20080614, end: 20080628
  2. SPIRIVA [Suspect]
     Indication: LUNG DISORDER
     Dosage: 1 CAPSUL EVERY MORNING
     Dates: start: 20080614, end: 20080628

REACTIONS (3)
  - APHONIA [None]
  - DYSPNOEA [None]
  - OROPHARYNGEAL PAIN [None]
